FAERS Safety Report 16343409 (Version 1)
Quarter: 2019Q2

REPORT INFORMATION
  Report Type: Spontaneous
  Country: DE (occurrence: DE)
  Receive Date: 20190522
  Receipt Date: 20190522
  Transmission Date: 20190711
  Serious: Yes (Hospitalization, Other)
  Sender: FDA-Public Use
  Company Number: DE-TEVA-2019-DE-1053123

PATIENT
  Age: 34 Year
  Sex: Female
  Weight: 48 kg

DRUGS (2)
  1. CIPROFLOXACIN. [Suspect]
     Active Substance: CIPROFLOXACIN
     Dosage: 2X 250 MG PER DAY/1ST DAY 3X 250 MG
     Route: 048
     Dates: start: 20171111, end: 20171111
  2. CIPROFLOXACIN. [Suspect]
     Active Substance: CIPROFLOXACIN
     Dosage: 2X 250 MG PRO TAG / 1. TAG 3X 250 MG
     Route: 048
     Dates: start: 20171112, end: 20171115

REACTIONS (21)
  - Immune system disorder [Unknown]
  - Anxiety [Unknown]
  - Somnolence [Not Recovered/Not Resolved]
  - Impaired work ability [Unknown]
  - Asthenia [Not Recovered/Not Resolved]
  - Depression [Unknown]
  - Myalgia [Not Recovered/Not Resolved]
  - Muscular weakness [Not Recovered/Not Resolved]
  - Mast cell activation syndrome [Unknown]
  - Tendon pain [Not Recovered/Not Resolved]
  - Cardiovascular disorder [Not Recovered/Not Resolved]
  - Cognitive disorder [Not Recovered/Not Resolved]
  - Pain [Unknown]
  - Sleep disorder [Not Recovered/Not Resolved]
  - Abdominal pain [Unknown]
  - Gait disturbance [Not Recovered/Not Resolved]
  - Adverse reaction [Unknown]
  - Food intolerance [Unknown]
  - Neuralgia [Not Recovered/Not Resolved]
  - Post viral fatigue syndrome [Unknown]
  - Loss of personal independence in daily activities [Unknown]

NARRATIVE: CASE EVENT DATE: 201711
